FAERS Safety Report 8246274-0 (Version None)
Quarter: 2012Q1

REPORT INFORMATION
  Report Type: 
  Country: None (occurrence: None)
  Receive Date: 20120329
  Receipt Date: 20120329
  Transmission Date: 20120608
  Serious: Yes (Other)
  Sender: FDA-Public Use
  Company Number: None

PATIENT
  Sex: Female
  Weight: 140.6151 kg

DRUGS (1)
  1. ACTEMRA [Suspect]
     Dosage: 500MG MONTHLY IV
     Route: 042
     Dates: start: 20120305, end: 20120305

REACTIONS (3)
  - CHEST PAIN [None]
  - UNEVALUABLE EVENT [None]
  - PYREXIA [None]
